FAERS Safety Report 19913141 (Version 1)
Quarter: 2021Q4

REPORT INFORMATION
  Report Type: Report from Study
  Country: FI (occurrence: FI)
  Receive Date: 20211004
  Receipt Date: 20211004
  Transmission Date: 20220303
  Serious: Yes (Other)
  Sender: FDA-Public Use
  Company Number: FI-MYLANLABS-2021M1067897

PATIENT
  Age: 24 Year
  Sex: Female

DRUGS (1)
  1. CLOZAPINE [Suspect]
     Active Substance: CLOZAPINE
     Indication: Product used for unknown indication
     Dosage: UNK
     Dates: start: 202108

REACTIONS (4)
  - Electrocardiogram T wave inversion [Unknown]
  - Electrocardiogram T wave abnormal [Unknown]
  - Electrocardiogram U wave present [Unknown]
  - Heart rate increased [Unknown]
